FAERS Safety Report 11791232 (Version 2)
Quarter: 2015Q4

REPORT INFORMATION
  Report Type: Report from Study
  Country: AU (occurrence: AU)
  Receive Date: 20151201
  Receipt Date: 20151210
  Transmission Date: 20160305
  Serious: Yes (Hospitalization)
  Sender: FDA-Public Use
  Company Number: AU-ABBVIE-15P-008-1511049-00

PATIENT
  Age: 59 Year
  Sex: Male
  Weight: 105 kg

DRUGS (5)
  1. RIBAVIRIN. [Suspect]
     Active Substance: RIBAVIRIN
     Indication: HEPATITIS C
     Route: 065
     Dates: start: 20151017
  2. PERINDOPRIL [Concomitant]
     Active Substance: PERINDOPRIL
     Indication: HYPERTENSION
     Dates: start: 2014
  3. VIEKIRA PAK [Suspect]
     Active Substance: DASABUVIR\OMBITASVIR\PARITAPREVIR\RITONAVIR
     Indication: HEPATITIS C
     Dosage: 3 TABLETS MANE, 1 TABLET NOCTE
     Route: 048
     Dates: start: 20151017
  4. LYRICA [Concomitant]
     Active Substance: PREGABALIN
     Indication: NEURALGIA
     Dosage: 150MG MANE, 75MG NOCTE
  5. SERETIDE [Concomitant]
     Active Substance: FLUTICASONE FUROATE\SALMETEROL XINAFOATE
     Indication: ASTHMA
     Dosage: 500MCG/50MCG     2 PUFFS BD

REACTIONS (4)
  - Cellulitis [Recovering/Resolving]
  - Erythema [Recovering/Resolving]
  - Oedema peripheral [Recovering/Resolving]
  - Tenderness [Recovering/Resolving]

NARRATIVE: CASE EVENT DATE: 20151119
